FAERS Safety Report 20746183 (Version 1)
Quarter: 2022Q2

REPORT INFORMATION
  Report Type: Report from Study
  Country: US (occurrence: US)
  Receive Date: 20220425
  Receipt Date: 20220425
  Transmission Date: 20220720
  Serious: No
  Sender: FDA-Public Use
  Company Number: US-MIRM-000355

PATIENT
  Age: 1 Year
  Sex: Male

DRUGS (11)
  1. LIVMARLI [Suspect]
     Active Substance: MARALIXIBAT CHLORIDE
     Indication: Alagille syndrome
     Route: 048
     Dates: start: 202112
  2. 2930039 (GLOBALC3Sep19): Hydroxyzine [Concomitant]
     Indication: Product used for unknown indication
  3. 1328139 (GLOBALC3Sep19): Rifampin [Concomitant]
     Indication: Product used for unknown indication
  4. 1328777 (GLOBALC3Sep19): Ursodiol [Concomitant]
     Indication: Product used for unknown indication
  5. 3532667 (GLOBALC3Sep19): Bactrim DS [Concomitant]
     Indication: Product used for unknown indication
  6. 1328915 (GLOBALC3Sep19): Vitamin K1 [Concomitant]
     Indication: Product used for unknown indication
  7. 1327311 (GLOBALC3Sep19): Zinc sulfate [Concomitant]
     Indication: Product used for unknown indication
  8. 1326650 (GLOBALC3Sep19): Iron Up [Concomitant]
     Indication: Product used for unknown indication
  9. 1328876 (GLOBALC3Sep19): Vitamin D3 [Concomitant]
     Indication: Product used for unknown indication
  10. 1328878 (GLOBALC3Sep19): Vitamin E [Concomitant]
     Indication: Product used for unknown indication
  11. 4052153 (GLOBALC3Sep19): Pediasure Peptide 1.5 [Concomitant]

REACTIONS (1)
  - Pruritus [Unknown]

NARRATIVE: CASE EVENT DATE: 20220301
